FAERS Safety Report 23911023 (Version 2)
Quarter: 2024Q4

REPORT INFORMATION
  Report Type: Spontaneous
  Country: US (occurrence: US)
  Receive Date: 20240528
  Receipt Date: 20241125
  Transmission Date: 20250115
  Serious: No
  Sender: AVADEL CNS PHARMACEUTICALS, LLC
  Company Number: US-AVADEL CNS PHARMACEUTICALS, LLC-2024AVA00701

PATIENT
  Sex: Female

DRUGS (8)
  1. LUMRYZ [Suspect]
     Active Substance: SODIUM OXYBATE
     Indication: Narcolepsy
     Dosage: 7.5 G, ONCE NIGHTLY
     Route: 048
     Dates: start: 202403, end: 2024
  2. LUMRYZ [Suspect]
     Active Substance: SODIUM OXYBATE
     Dosage: 7.5 G, ONCE NIGHTLY
     Route: 048
     Dates: start: 2024, end: 2024
  3. NUVIGIL [Concomitant]
     Active Substance: ARMODAFINIL
  4. ADDERALL [Concomitant]
     Active Substance: AMPHETAMINE ASPARTATE\AMPHETAMINE SULFATE\DEXTROAMPHETAMINE SACCHARATE\DEXTROAMPHETAMINE SULFATE
  5. LOSARTAN [Concomitant]
     Active Substance: LOSARTAN
  6. ZYRTEC [Concomitant]
     Active Substance: CETIRIZINE HYDROCHLORIDE
  7. UNSPECIFIED INGREDIENT [Concomitant]
     Active Substance: UNSPECIFIED INGREDIENT
     Dosage: THYROID MEDICATION
  8. VITAMIN D NOS [Concomitant]
     Active Substance: CHOLECALCIFEROL\ERGOCALCIFEROL

REACTIONS (6)
  - Stress [Not Recovered/Not Resolved]
  - Initial insomnia [Not Recovered/Not Resolved]
  - Middle insomnia [Not Recovered/Not Resolved]
  - Emotional disorder [Not Recovered/Not Resolved]
  - Nocturia [Recovered/Resolved]
  - Enuresis [Recovered/Resolved]

NARRATIVE: CASE EVENT DATE: 20240101
